FAERS Safety Report 17763666 (Version 1)
Quarter: 2020Q2

REPORT INFORMATION
  Report Type: Report from Study
  Country: CA (occurrence: CA)
  Receive Date: 20200509
  Receipt Date: 20200509
  Transmission Date: 20200714
  Serious: Yes (Death)
  Sender: FDA-Public Use
  Company Number: CA-TAKEDA-2020TUS021684

PATIENT
  Age: 88 Year
  Sex: Male

DRUGS (10)
  1. SANDOZ RIVASTIGMINE [Concomitant]
     Dosage: 4.6 MILLIGRAM, QD
     Dates: start: 20190425, end: 20190523
  2. VEDOLIZUMAB [Suspect]
     Active Substance: VEDOLIZUMAB
     Indication: CROHN^S DISEASE
     Dosage: 300 MILLIGRAM
     Route: 042
     Dates: start: 20190625
  3. RIVA ATORVASTATIN [Concomitant]
     Dosage: 10 MILLIGRAM, QD
     Dates: start: 20181111
  4. LAX-A-DAY [Concomitant]
     Dosage: UNK UNK, QD
     Dates: start: 20190124
  5. PRO CAL [Concomitant]
     Dosage: 500 MILLIGRAM, BID
     Dates: start: 20181111
  6. JENTADUETO [Concomitant]
     Active Substance: LINAGLIPTIN\METFORMIN HYDROCHLORIDE
     Dosage: UNK UNK, BID
     Dates: start: 20181111
  7. D-TABS [Concomitant]
     Active Substance: CHOLECALCIFEROL
     Dosage: 10000 INTERNATIONAL UNIT, 1/WEEK
     Dates: start: 20181111
  8. APO GLICLAZIDE [Concomitant]
     Dosage: 30 MILLIGRAM, QD
     Dates: start: 20181111
  9. PRO-QUETIAPINE [Concomitant]
     Dosage: UNK UNK, QD
     Dates: start: 20190425
  10. SANDOZ RIVASTIGMINE [Concomitant]
     Dosage: 9.5 MILLIGRAM, QD
     Dates: start: 20190523

REACTIONS (1)
  - Death [Fatal]

NARRATIVE: CASE EVENT DATE: 20200430
